FAERS Safety Report 4533088-8 (Version None)
Quarter: 2004Q4

REPORT INFORMATION
  Report Type: 
  Country: None (occurrence: None)
  Receive Date: 20041206
  Receipt Date: 20041014
  Transmission Date: 20050328
  Serious: No
  Sender: FDA-Public Use
  Company Number: USA041081216

PATIENT
  Age: 54 Year
  Sex: Female

DRUGS (3)
  1. CYMBALTA [Suspect]
     Indication: DEPRESSION
     Dosage: 60 MG/ 1 DAY
     Dates: start: 20041008
  2. LESCOL [Concomitant]
  3. VIVELLE [Concomitant]

REACTIONS (2)
  - DEPRESSED MOOD [None]
  - SOMNOLENCE [None]
